FAERS Safety Report 6699771-3 (Version None)
Quarter: 2010Q2

REPORT INFORMATION
  Report Type: 
  Country: None (occurrence: None)
  Receive Date: 20100428
  Receipt Date: 20100419
  Transmission Date: 20101027
  Serious: Yes (Other)
  Sender: FDA-Public Use
  Company Number: JP-JNJFOC-20100110526

PATIENT
  Sex: Male

DRUGS (14)
  1. ITRIZOLE [Suspect]
     Indication: DRUG USE FOR UNKNOWN INDICATION
     Route: 042
  2. ITRIZOLE [Suspect]
     Route: 048
  3. ITRIZOLE [Suspect]
     Route: 048
  4. ITRIZOLE [Suspect]
     Route: 048
  5. THEOPHYLLINE [Concomitant]
     Indication: EMPHYSEMA
     Route: 048
  6. ROXATIDINE ACETATE HCL [Concomitant]
     Indication: GASTRITIS
     Route: 048
  7. TAMSULOSIN HYDROCHLORIDE [Concomitant]
     Indication: BENIGN PROSTATIC HYPERPLASIA
     Route: 048
  8. FUROSEMIDE [Concomitant]
     Indication: CARDIAC FAILURE
     Route: 048
  9. ASPIRIN DIALUMINATE [Concomitant]
     Indication: CEREBROVASCULAR DISORDER
     Route: 048
  10. MAGNESIUM OXIDE [Concomitant]
     Indication: CONSTIPATION
     Route: 048
  11. NITROGLYCERIN [Concomitant]
     Indication: ANGINA PECTORIS
     Route: 062
  12. AMBROXOL HYDROCHLORIDE [Concomitant]
     Indication: BRONCHITIS CHRONIC
     Route: 048
  13. SENNOSIDE [Concomitant]
     Indication: CONSTIPATION
     Route: 048
  14. DIAZEPAM [Concomitant]
     Indication: NEUROSIS
     Route: 048

REACTIONS (3)
  - BRADYCARDIA [None]
  - PYREXIA [None]
  - RASH [None]
